FAERS Safety Report 8938398 (Version 1)
Quarter: 2012Q4

REPORT INFORMATION
  Report Type: 
  Country: US (occurrence: US)
  Receive Date: 20121130
  Receipt Date: 20121130
  Transmission Date: 20130627
  Serious: Yes (Hospitalization)
  Sender: FDA-Public Use
  Company Number: US-ACTELION-A-NJ2012-75409

PATIENT
  Age: 40 Year
  Sex: Male

DRUGS (3)
  1. VELETRI [Suspect]
     Indication: PULMONARY ARTERIAL HYPERTENSION
     Dosage: 24 ng/kg, per min
     Route: 041
     Dates: start: 20120604
  2. ADCIRCA [Concomitant]
  3. LETAIRIS [Concomitant]

REACTIONS (4)
  - Drug abuse [Unknown]
  - Catheter site pain [Unknown]
  - Catheter site swelling [Unknown]
  - Catheter site erythema [Unknown]
